FAERS Safety Report 7052811-4 (Version None)
Quarter: 2010Q4

REPORT INFORMATION
  Report Type: 
  Country: None (occurrence: None)
  Receive Date: 20101012
  Receipt Date: 20101001
  Transmission Date: 20110411
  Serious: Yes (Other)
  Sender: FDA-Public Use
  Company Number: 2010SP052744

PATIENT
  Age: 74 Year
  Sex: Female

DRUGS (1)
  1. REMERON [Suspect]
     Indication: DEPRESSION
     Dosage: 7.5 MG;QD;PO
     Route: 048
     Dates: start: 20100930

REACTIONS (1)
  - MOVEMENT DISORDER [None]
